FAERS Safety Report 4703668-5 (Version None)
Quarter: 2005Q2

REPORT INFORMATION
  Report Type: 
  Country: None (occurrence: None)
  Receive Date: 20050628
  Receipt Date: 20050615
  Transmission Date: 20051028
  Serious: Yes (Other)
  Sender: FDA-Public Use
  Company Number: 200511216BWH

PATIENT
  Sex: Male

DRUGS (3)
  1. LEVITRA [Suspect]
     Dosage: 20 MG, OW, ORAL
     Route: 048
     Dates: start: 20040101
  2. VIAGRA [Concomitant]
  3. CIALIS [Concomitant]

REACTIONS (4)
  - CHROMATOPSIA [None]
  - DRUG EFFECT DECREASED [None]
  - VISUAL ACUITY REDUCED [None]
  - VISUAL FIELD DEFECT [None]
